FAERS Safety Report 15827111 (Version 5)
Quarter: 2019Q4

REPORT INFORMATION
  Report Type: Spontaneous
  Country: PR (occurrence: PR)
  Receive Date: 20190115
  Receipt Date: 20191219
  Transmission Date: 20200122
  Serious: Yes (Other)
  Sender: FDA-Public Use
  Company Number: PR-PFIZER INC-2019018162

PATIENT
  Age: 58 Year
  Sex: Female
  Weight: 62 kg

DRUGS (4)
  1. IBRANCE [Suspect]
     Active Substance: PALBOCICLIB
     Indication: BREAST CANCER METASTATIC
     Dosage: 125 MG, CYCLIC (1 CAPSULE DAILY ON 21 DAYS AND 7 DAYS OFF)
     Route: 048
     Dates: start: 20181218
  2. IBRANCE [Suspect]
     Active Substance: PALBOCICLIB
     Dosage: 125 MG, CYCLIC  (1 CAPSULE DAILY ON 21 DAYS AND 7 DAYS OFF)
     Route: 048
  3. IBRANCE [Suspect]
     Active Substance: PALBOCICLIB
     Dosage: 125 MG, CYCLIC (DAILY 21 DAYS, 7 DAYS OFF)
     Route: 048
  4. IBRANCE [Suspect]
     Active Substance: PALBOCICLIB
     Dosage: 125 MG, CYCLIC  (1 CAPSULE DAILY ON 21 DAYS AND 7 DAYS OFF)
     Route: 048

REACTIONS (11)
  - Neoplasm progression [Unknown]
  - Fatigue [Unknown]
  - Alopecia [Unknown]
  - Muscular weakness [Unknown]
  - Pruritus [Unknown]
  - Headache [Unknown]
  - Cerebrovascular accident [Unknown]
  - Rash [Unknown]
  - Weight decreased [Unknown]
  - Blindness [Unknown]
  - Haemoglobin decreased [Unknown]

NARRATIVE: CASE EVENT DATE: 20190626
